FAERS Safety Report 5050287-X (Version None)
Quarter: 2006Q3

REPORT INFORMATION
  Report Type: 
  Country: None (occurrence: None)
  Receive Date: 20060707
  Receipt Date: 20060622
  Transmission Date: 20061208
  Serious: Yes (Other)
  Sender: FDA-Public Use
  Company Number: S06-CAN-02645-01

PATIENT
  Sex: Male

DRUGS (4)
  1. MEMANTINE HCL [Suspect]
     Dosage: 10 MG QD PO
     Route: 048
  2. ARICEPT [Suspect]
     Dosage: 10 MG QD PO
     Route: 048
  3. PREDNISOLONE [Concomitant]
  4. QUININE SULFATE [Concomitant]

REACTIONS (1)
  - RHINITIS [None]
